FAERS Safety Report 25840576 (Version 3)
Quarter: 2025Q4

REPORT INFORMATION
  Report Type: Report from Study
  Country: US (occurrence: US)
  Receive Date: 20250924
  Receipt Date: 20251118
  Transmission Date: 20260118
  Serious: No
  Sender: MALLINCKRODT
  Company Number: US-MALLINCKRODT-MNK202505541

PATIENT
  Age: 60 Year
  Sex: Male
  Weight: 230 kg

DRUGS (2)
  1. CORTICOTROPIN [Suspect]
     Active Substance: CORTICOTROPIN
     Indication: Ankylosing spondylitis
     Dosage: 80 UNITS
     Route: 058
     Dates: start: 20250812
  2. RINVOQ [Concomitant]
     Active Substance: UPADACITINIB
     Dosage: UNKNOWN

REACTIONS (4)
  - Weight increased [Not Recovered/Not Resolved]
  - Decreased appetite [Unknown]
  - Sleep deficit [Unknown]
  - Therapeutic product effect incomplete [Not Recovered/Not Resolved]

NARRATIVE: CASE EVENT DATE: 20250901
